FAERS Safety Report 23110167 (Version 1)
Quarter: 2023Q4

REPORT INFORMATION
  Report Type: Spontaneous
  Country: CN (occurrence: CN)
  Receive Date: 20231026
  Receipt Date: 20231026
  Transmission Date: 20240110
  Serious: Yes (Life-Threatening)
  Sender: FDA-Public Use
  Company Number: CN-ELI_LILLY_AND_COMPANY-CN202310014415

PATIENT
  Age: 60 Year
  Sex: Female

DRUGS (2)
  1. GEMZAR [Suspect]
     Active Substance: GEMCITABINE HYDROCHLORIDE
     Indication: Tumour of ampulla of Vater
     Dosage: 1400 MG, WEEKLY (1/W)
     Route: 041
     Dates: start: 20231009, end: 20231016
  2. CAPECITABINE [Suspect]
     Active Substance: CAPECITABINE
     Indication: Tumour of ampulla of Vater
     Dosage: 2 G, BID
     Route: 058
     Dates: start: 20231009, end: 20231022

REACTIONS (1)
  - Myelosuppression [Recovering/Resolving]

NARRATIVE: CASE EVENT DATE: 20231015
